FAERS Safety Report 9044934 (Version 1)
Quarter: 2013Q1

REPORT INFORMATION
  Report Type: Spontaneous
  Country: JP (occurrence: JP)
  Receive Date: 20130130
  Receipt Date: 20130130
  Transmission Date: 20140127
  Serious: Yes (Hospitalization)
  Sender: FDA-Public Use
  Company Number: JP-GLAXOSMITHKLINE-B0863020A

PATIENT
  Sex: Male

DRUGS (2)
  1. FLOLAN [Suspect]
     Indication: PULMONARY ARTERIAL HYPERTENSION
     Dosage: 15NGKM PER DAY
     Route: 042
     Dates: start: 20120326
  2. REVATIO [Suspect]
     Indication: PULMONARY ARTERIAL HYPERTENSION
     Dosage: 20MG THREE TIMES PER DAY
     Route: 065

REACTIONS (2)
  - Pulmonary arterial pressure increased [Recovered/Resolved]
  - Rash [Recovered/Resolved]
